FAERS Safety Report 10528836 (Version 9)
Quarter: 2020Q1

REPORT INFORMATION
  Report Type: Spontaneous
  Country: US (occurrence: US)
  Receive Date: 20141020
  Receipt Date: 20200110
  Transmission Date: 20200409
  Serious: Yes (Hospitalization, Other)
  Sender: FDA-Public Use
  Company Number: US-PFIZER INC-2014285754

PATIENT
  Sex: Female
  Weight: 49.9 kg

DRUGS (9)
  1. REVATIO [Suspect]
     Active Substance: SILDENAFIL CITRATE
     Indication: PULMONARY ARTERIAL HYPERTENSION
     Dosage: 20MG TABLET 4 TABS, THREE TIMES DAILY (20 MG /4 PILLS 3 TIMES A DAY)/(60 DAY SUPPLY, 4 TABS PO TID)
     Route: 048
  2. DIGOXIN. [Concomitant]
     Active Substance: DIGOXIN
     Dosage: UNK
     Dates: start: 1998
  3. ORENITRAM [Concomitant]
     Active Substance: TREPROSTINIL
     Dosage: UNK
     Dates: start: 2009
  4. REVATIO [Suspect]
     Active Substance: SILDENAFIL CITRATE
     Indication: PULMONARY HYPERTENSION
  5. COUMADIN [Concomitant]
     Active Substance: WARFARIN SODIUM
     Dosage: UNK
     Dates: start: 1987
  6. LASIX [Concomitant]
     Active Substance: FUROSEMIDE
     Dosage: UNK
     Dates: start: 2005
  7. REVATIO [Suspect]
     Active Substance: SILDENAFIL CITRATE
     Indication: PAIN
     Dosage: 80 MG, 3X/DAY
     Route: 048
  8. LETAIRIS [Concomitant]
     Active Substance: AMBRISENTAN
     Dosage: UNK
     Dates: start: 2009
  9. SPIRONOLACTONE. [Concomitant]
     Active Substance: SPIRONOLACTONE
     Dosage: UNK
     Dates: start: 2005

REACTIONS (4)
  - Product use issue [Unknown]
  - Heart rate increased [Not Recovered/Not Resolved]
  - Cardiac failure congestive [Unknown]
  - Off label use [Unknown]
